FAERS Safety Report 17834024 (Version 1)
Quarter: 2020Q2

REPORT INFORMATION
  Report Type: Spontaneous
  Country: GB (occurrence: GB)
  Receive Date: 20200528
  Receipt Date: 20200528
  Transmission Date: 20200714
  Serious: Yes (Other)
  Sender: FDA-Public Use
  Company Number: GB-ALEXION PHARMACEUTICALS INC-A202007263

PATIENT
  Age: 22 Year
  Sex: Male

DRUGS (1)
  1. SOLIRIS [Suspect]
     Active Substance: ECULIZUMAB
     Indication: ATYPICAL HAEMOLYTIC URAEMIC SYNDROME
     Dosage: UNK
     Route: 065
     Dates: start: 2013, end: 2014

REACTIONS (6)
  - Renal tubular necrosis [Unknown]
  - Renal transplant [Unknown]
  - Blood creatine increased [Unknown]
  - Proteinuria [Unknown]
  - Delayed graft function [Unknown]
  - End stage renal disease [Recovered/Resolved]
